FAERS Safety Report 24189642 (Version 1)
Quarter: 2024Q3

REPORT INFORMATION
  Report Type: Spontaneous
  Country: GB (occurrence: GB)
  Receive Date: 20240808
  Receipt Date: 20240808
  Transmission Date: 20241016
  Serious: Yes (Death, Other)
  Sender: TAKEDA
  Company Number: GB-TAKEDA-2024TUS078900

PATIENT
  Sex: Male

DRUGS (2)
  1. CUVITRU [Suspect]
     Active Substance: HUMAN IMMUNOGLOBULIN G
     Indication: Product used for unknown indication
     Dosage: 20 GRAM, 1/WEEK
     Route: 042
  2. EMLA [Concomitant]
     Active Substance: LIDOCAINE\PRILOCAINE
     Dosage: UNK

REACTIONS (1)
  - Death [Fatal]
